FAERS Safety Report 5122105-2 (Version None)
Quarter: 2006Q4

REPORT INFORMATION
  Report Type: 
  Country: None (occurrence: None)
  Receive Date: 20061004
  Receipt Date: 20061004
  Transmission Date: 20070319
  Serious: Yes (Hospitalization)
  Sender: FDA-Public Use
  Company Number: None

PATIENT
  Age: 74 Year
  Sex: Male
  Weight: 70.8 kg

DRUGS (2)
  1. WARFARIN SODIUM [Suspect]
     Indication: ATRIAL FIBRILLATION
     Dosage: 5 MG QD PO [SEVERAL YEARS]
     Route: 048
  2. PREDNISONE [Suspect]
     Indication: DRUG USE FOR UNKNOWN INDICATION
     Dosage: 60X7, 40X7, 20X7, 10X7, 5X/DAY QD WEEKLY TAPER PO
     Route: 048

REACTIONS (21)
  - ACUTE PRERENAL FAILURE [None]
  - ANAEMIA [None]
  - ANOREXIA [None]
  - BLADDER DISORDER [None]
  - BLOOD CHOLESTEROL ABNORMAL [None]
  - BLOOD PRESSURE ABNORMAL [None]
  - DIARRHOEA [None]
  - GOUT [None]
  - HAEMORRHAGE [None]
  - HYPOTHYROIDISM [None]
  - INFECTION [None]
  - INFLAMMATION [None]
  - INTERNATIONAL NORMALISED RATIO INCREASED [None]
  - MUSCULAR WEAKNESS [None]
  - MYOPATHY [None]
  - POLYMYOSITIS [None]
  - PYURIA [None]
  - RHEUMATOID ARTHRITIS [None]
  - URINARY INCONTINENCE [None]
  - WEIGHT DECREASED [None]
  - WOUND [None]
